FAERS Safety Report 10409109 (Version 1)
Quarter: 2014Q1

REPORT INFORMATION
  Report Type: Spontaneous
  Country: US (occurrence: None)
  Receive Date: 20131030
  Receipt Date: 20131030
  Transmission Date: 20141002
  Serious: Yes (Other)
  Sender: FDA-Public Use
  Company Number: 360186N

PATIENT
  Sex: Female

DRUGS (1)
  1. VAGIFEM LD [Suspect]
     Indication: VULVOVAGINAL PAIN
     Dosage: UNK, VAGINAL
     Route: 067
     Dates: start: 20120710, end: 20120729

REACTIONS (1)
  - Tension headache [None]
